FAERS Safety Report 4513938-1 (Version None)
Quarter: 2004Q4

REPORT INFORMATION
  Report Type: 
  Country: None (occurrence: None)
  Receive Date: 20041130
  Receipt Date: 20041004
  Transmission Date: 20050328
  Serious: No
  Sender: FDA-Public Use
  Company Number: US-GLAXOSMITHKLINE-A0528423A

PATIENT
  Age: 51 Year
  Sex: Male

DRUGS (9)
  1. WELLBUTRIN XL [Suspect]
     Indication: ANXIETY
     Dosage: 150MG PER DAY
     Route: 048
     Dates: start: 20040907
  2. PAXIL [Suspect]
     Dosage: 25MG PER DAY
     Route: 048
     Dates: end: 20040101
  3. PERCOCET [Concomitant]
  4. PRILOSEC [Concomitant]
  5. LISINOPRIL [Concomitant]
  6. LIPITOR [Concomitant]
  7. ALPRAZOLAM [Concomitant]
  8. IBU [Concomitant]
  9. VIAGRA [Concomitant]

REACTIONS (3)
  - ANXIETY [None]
  - DRUG INEFFECTIVE [None]
  - LOSS OF LIBIDO [None]
